FAERS Safety Report 25766004 (Version 1)
Quarter: 2025Q3

REPORT INFORMATION
  Report Type: Spontaneous
  Country: US (occurrence: US)
  Receive Date: 20250905
  Receipt Date: 20250905
  Transmission Date: 20251020
  Serious: No
  Sender: DOMPE FARMACEUTICI
  Company Number: US-FARMAPROD-202407-2716

PATIENT
  Age: 54 Year
  Sex: Female

DRUGS (14)
  1. OXERVATE [Suspect]
     Active Substance: CENEGERMIN-BKBJ
     Indication: Neurotrophic keratopathy
     Route: 047
     Dates: start: 20240715
  2. IVIZIA [Concomitant]
     Active Substance: POVIDONE
  3. MULTIVITAMIN 50 PLUS [Concomitant]
  4. CLOBETASOL PROPIONATE [Concomitant]
     Active Substance: CLOBETASOL PROPIONATE
  5. FISH OIL [Concomitant]
     Active Substance: FISH OIL
  6. VITAMIN D3-VITAMIN K2 [Concomitant]
  7. TIZANIDINE HYDROCHLORIDE [Concomitant]
     Active Substance: TIZANIDINE HYDROCHLORIDE
  8. TRAZODONE HCL [Concomitant]
     Active Substance: TRAZODONE HYDROCHLORIDE
  9. DICLOFENAC SODIUM [Concomitant]
     Active Substance: DICLOFENAC SODIUM
  10. ESTRADIOL [Concomitant]
     Active Substance: ESTRADIOL
  11. NALTREX [Concomitant]
  12. TESTOSTERONE [Concomitant]
     Active Substance: TESTOSTERONE
  13. PROGESTERONE [Concomitant]
     Active Substance: PROGESTERONE
  14. ESTRADIOL [Concomitant]
     Active Substance: ESTRADIOL

REACTIONS (2)
  - Periorbital pain [Not Recovered/Not Resolved]
  - Eye pain [Not Recovered/Not Resolved]

NARRATIVE: CASE EVENT DATE: 20240717
